FAERS Safety Report 15378977 (Version 1)
Quarter: 2018Q3

REPORT INFORMATION
  Report Type: Spontaneous
  Country: US (occurrence: US)
  Receive Date: 20180913
  Receipt Date: 20180913
  Transmission Date: 20181010
  Serious: No
  Sender: FDA-Public Use
  Company Number: US-LPDUSPRD-20180736

PATIENT
  Age: 17 Year
  Sex: Female

DRUGS (1)
  1. INJECTAFER [Suspect]
     Active Substance: FERRIC CARBOXYMALTOSE
     Dosage: UNKOWN
     Route: 042
     Dates: start: 201804

REACTIONS (3)
  - Hot flush [Recovered/Resolved]
  - Off label use [Unknown]
  - Dyspnoea [Unknown]

NARRATIVE: CASE EVENT DATE: 201804
